FAERS Safety Report 24315928 (Version 1)
Quarter: 2024Q3

REPORT INFORMATION
  Report Type: Spontaneous
  Country: US (occurrence: US)
  Receive Date: 20240913
  Receipt Date: 20240913
  Transmission Date: 20241017
  Serious: Yes (Life-Threatening, Hospitalization)
  Sender: MYLAN
  Company Number: US-MYLANLABS-2024M1082873

PATIENT
  Age: 2 Month
  Sex: Male

DRUGS (3)
  1. HEPARIN [Suspect]
     Active Substance: HEPARIN SODIUM
     Indication: Anticoagulant therapy
     Dosage: UNK (RECEIVED 18 UNITS/KG/H)
     Route: 065
  2. HEPARIN [Suspect]
     Active Substance: HEPARIN SODIUM
     Dosage: UNK (RECEIVED 60?UNITS/KG/H)
     Route: 065
  3. THROMBATE III [Suspect]
     Active Substance: ANTITHROMBIN III HUMAN
     Indication: Anticoagulant therapy
     Dosage: UNK (RECEIVED 65?UNITS/KG)
     Route: 065

REACTIONS (1)
  - Drug ineffective [Unknown]
